FAERS Safety Report 24631154 (Version 1)
Quarter: 2024Q4

REPORT INFORMATION
  Report Type: Spontaneous
  Country: US (occurrence: US)
  Receive Date: 20241118
  Receipt Date: 20241118
  Transmission Date: 20250114
  Serious: No
  Sender: EISAI
  Company Number: US-Eisai-EC-2024-177541

PATIENT
  Age: 67 Year
  Sex: Female

DRUGS (13)
  1. LEQEMBI [Suspect]
     Active Substance: LECANEMAB-IRMB
     Indication: Dementia Alzheimer^s type
     Dosage: DOSE UNKNOWN
     Route: 042
     Dates: start: 2024
  2. DONEPEZIL [Concomitant]
     Active Substance: DONEPEZIL
  3. ROSUVASTATIN [Concomitant]
     Active Substance: ROSUVASTATIN
  4. COREG [Concomitant]
     Active Substance: CARVEDILOL
  5. LOSARTAN [Concomitant]
     Active Substance: LOSARTAN
  6. MELOXICAM [Concomitant]
     Active Substance: MELOXICAM
  7. FEXOFENIDATE [Concomitant]
  8. GABAPENTIN [Concomitant]
     Active Substance: GABAPENTIN
  9. NIFEDIPINE [Concomitant]
     Active Substance: NIFEDIPINE
  10. BIOTIN [Concomitant]
     Active Substance: BIOTIN
  11. VITAMIN C [Concomitant]
     Active Substance: ASCORBIC ACID
  12. FLONASE [Concomitant]
     Active Substance: FLUTICASONE PROPIONATE
  13. CETIRIZINE HYDROCHLORIDE [Concomitant]
     Active Substance: CETIRIZINE HYDROCHLORIDE

REACTIONS (1)
  - Amyloid related imaging abnormality-microhaemorrhages and haemosiderin deposits [Unknown]

NARRATIVE: CASE EVENT DATE: 20240101
